FAERS Safety Report 8067543-3 (Version None)
Quarter: 2012Q1

REPORT INFORMATION
  Report Type: 
  Country: None (occurrence: None)
  Receive Date: 20120124
  Receipt Date: 20120120
  Transmission Date: 20120608
  Serious: Yes (Other)
  Sender: FDA-Public Use
  Company Number: US-TEVA-318851USA

PATIENT

DRUGS (1)
  1. PACLITAXEL [Suspect]
     Dosage: 100 MG/16.7 ML

REACTIONS (1)
  - ESCHERICHIA SEPSIS [None]
